FAERS Safety Report 5220522-3 (Version None)
Quarter: 2007Q1

REPORT INFORMATION
  Report Type: 
  Country: None (occurrence: None)
  Receive Date: 20070125
  Receipt Date: 20070125
  Transmission Date: 20070707
  Serious: Yes (Hospitalization)
  Sender: FDA-Public Use
  Company Number: None

PATIENT
  Sex: Female
  Weight: 71.2147 kg

DRUGS (8)
  1. ATENOLOL [Suspect]
     Indication: HYPERTENSION
     Dosage: 50 MG PO QD PRIOR TO ADMISSION
     Route: 048
  2. ATENOLOL [Suspect]
     Indication: HYPERTENSION
     Dosage: 25MG PO QD DOSE D'ED ON 4/29/06
     Route: 048
  3. DIOVAN [Concomitant]
  4. AMARYL [Concomitant]
  5. GLUCOPHAGE [Concomitant]
  6. LESCOL [Concomitant]
  7. LORCET-HD [Concomitant]
  8. AMBIEN [Concomitant]

REACTIONS (7)
  - ASTHENIA [None]
  - FALL [None]
  - FATIGUE [None]
  - FOOT FRACTURE [None]
  - GAIT DISTURBANCE [None]
  - NAUSEA [None]
  - SINUS BRADYCARDIA [None]
